FAERS Safety Report 17394212 (Version 1)
Quarter: 2020Q1

REPORT INFORMATION
  Report Type: Report from Study
  Country: HU (occurrence: HU)
  Receive Date: 20200210
  Receipt Date: 20200210
  Transmission Date: 20200409
  Serious: Yes (Other)
  Sender: FDA-Public Use
  Company Number: HU-ROCHE-2544532

PATIENT

DRUGS (3)
  1. BEVACIZUMAB. [Suspect]
     Active Substance: BEVACIZUMAB
     Indication: NEUROENDOCRINE TUMOUR
     Route: 065
  2. CAPECITABINE. [Suspect]
     Active Substance: CAPECITABINE
     Indication: NEUROENDOCRINE TUMOUR
     Route: 065
  3. TEMOZOLOMIDE. [Suspect]
     Active Substance: TEMOZOLOMIDE
     Indication: NEUROENDOCRINE TUMOUR
     Route: 004

REACTIONS (8)
  - Asthenia [Unknown]
  - Thrombocytopenia [Unknown]
  - Hypertension [Unknown]
  - Vomiting [Unknown]
  - Nausea [Unknown]
  - Palmar-plantar erythrodysaesthesia syndrome [Unknown]
  - Diarrhoea [Unknown]
  - Renal failure [Unknown]
